FAERS Safety Report 17417383 (Version 2)
Quarter: 2020Q3

REPORT INFORMATION
  Report Type: Report from Study
  Country: None (occurrence: US)
  Receive Date: 20200214
  Receipt Date: 20200724
  Transmission Date: 20201102
  Serious: Yes (Hospitalization, Other)
  Sender: FDA-Public Use
  Company Number: US-ABBVIE-20K-163-3219143-00

PATIENT
  Sex: Female

DRUGS (2)
  1. HUMIRA [Suspect]
     Active Substance: ADALIMUMAB
     Dosage: CITRATE FREE
     Route: 058
     Dates: start: 202002
  2. HUMIRA [Suspect]
     Active Substance: ADALIMUMAB
     Indication: HIDRADENITIS
     Dosage: CITRATE FREE
     Route: 058

REACTIONS (9)
  - Haematoma [Unknown]
  - Upper limb fracture [Recovered/Resolved]
  - Staphylococcal skin infection [Unknown]
  - Hidradenitis [Recovering/Resolving]
  - Upper limb fracture [Unknown]
  - Chance fracture [Recovered/Resolved]
  - Sepsis [Unknown]
  - Road traffic accident [Recovered/Resolved]
  - Forearm fracture [Unknown]
